FAERS Safety Report 16526313 (Version 1)
Quarter: 2019Q3

REPORT INFORMATION
  Report Type: Spontaneous
  Country: US (occurrence: US)
  Receive Date: 20190703
  Receipt Date: 20190703
  Transmission Date: 20191004
  Serious: No
  Sender: FDA-Public Use
  Company Number: US-TEVA-2019-US-1068974

PATIENT
  Age: 34 Year
  Sex: Female

DRUGS (1)
  1. COPAXONE [Suspect]
     Active Substance: GLATIRAMER ACETATE
     Dosage: FORM STRENGTH: UNKNOWN?DURATION: 4 TO 5 YEARS

REACTIONS (7)
  - Injection site erythema [Unknown]
  - Alopecia [Unknown]
  - Injection site pain [Unknown]
  - Injection site pruritus [Unknown]
  - Injection site swelling [Unknown]
  - Injection site mass [Unknown]
  - Injection site reaction [Unknown]
